FAERS Safety Report 11380008 (Version 3)
Quarter: 2015Q4

REPORT INFORMATION
  Report Type: Spontaneous
  Country: CN (occurrence: CN)
  Receive Date: 20150814
  Receipt Date: 20151103
  Transmission Date: 20160304
  Serious: Yes (Death, Other)
  Sender: FDA-Public Use
  Company Number: CN-ACCORD-033051

PATIENT
  Age: 52 Year
  Sex: Male

DRUGS (6)
  1. IMIPENEM [Concomitant]
     Active Substance: IMIPENEM
  2. MYCOPHENOLIC ACID. [Concomitant]
     Active Substance: MYCOPHENOLIC ACID
     Indication: LIVER TRANSPLANT
  3. PREDNISONE. [Concomitant]
     Active Substance: PREDNISONE
     Indication: LIVER TRANSPLANT
  4. TACROLIMUS. [Suspect]
     Active Substance: TACROLIMUS
     Indication: LIVER TRANSPLANT
     Dosage: ALSO RECEIVED TACROLIMUS 2 MG Q12H AND ON THE 12TH POSTOPERATIVE DAY  DOSE INCREASED TO 3 MG Q12H.
  5. METHYLPREDNISOLONE. [Concomitant]
     Active Substance: METHYLPREDNISOLONE
     Indication: LIVER TRANSPLANT
  6. CILASTATIN/CILASTATIN SODIUM [Concomitant]

REACTIONS (3)
  - Multi-organ failure [Fatal]
  - Posterior reversible encephalopathy syndrome [Unknown]
  - Graft versus host disease [Unknown]
